FAERS Safety Report 8534567-9 (Version None)
Quarter: 2012Q3

REPORT INFORMATION
  Report Type: 
  Country: None (occurrence: None)
  Receive Date: 20120724
  Receipt Date: 20120713
  Transmission Date: 20120928
  Serious: Yes (Hospitalization)
  Sender: FDA-Public Use
  Company Number: US-CELGENEUS-163-C5013-12071599

PATIENT
  Sex: Female
  Weight: 87.1 kg

DRUGS (21)
  1. ATORVASTATIN [Concomitant]
     Dosage: 40 MILLIGRAM
     Route: 048
     Dates: start: 20120423
  2. ACYCLOVIR [Concomitant]
     Dosage: 400 MILLIGRAM
     Route: 048
  3. PROVENTIL [Concomitant]
     Dosage: 90 MICROGRAM
     Route: 055
     Dates: start: 20120423, end: 20120423
  4. FLUTICASONE PROPIONATE/SALMETEROL [Concomitant]
     Dosage: 4 PUFFS  100-50MCG
     Route: 055
  5. FUROSEMIDE [Concomitant]
     Dosage: 20 MILLIGRAM
     Route: 048
     Dates: start: 20110920
  6. ASPIRIN [Concomitant]
     Dosage: 325 MILLIGRAM
     Route: 048
  7. ATENOLOL [Concomitant]
     Dosage: 50 MILLIGRAM
     Route: 048
  8. LANTUS [Concomitant]
     Dosage: 32-36UNITS
     Route: 058
  9. NIFEDIPINE [Concomitant]
     Dosage: 60 MILLIGRAM
     Route: 048
     Dates: start: 20120423
  10. DILAUDID [Concomitant]
     Indication: PAIN
     Dosage: 2 MILLIGRAM
     Route: 048
     Dates: start: 20110920
  11. LOPERAMIDE [Concomitant]
     Dosage: 8 MILLIGRAM
     Route: 048
  12. ACETAMINOPHEN [Concomitant]
     Dosage: 650 MILLIGRAM
     Route: 048
     Dates: start: 20100126
  13. CALCIUM + VITAMIN D [Concomitant]
     Route: 048
  14. LENALIDOMIDE [Suspect]
     Indication: MULTIPLE MYELOMA
     Dosage: 25 MILLIGRAM
     Route: 048
     Dates: start: 20120618, end: 20120708
  15. DEXAMETHASONE [Suspect]
     Indication: MULTIPLE MYELOMA
     Dosage: 20 MILLIGRAM
     Route: 065
  16. LOSARTAN POTASSIUM AND HYDROCHLOROTHIAZIDE [Concomitant]
     Dosage: 100-12.5MG
     Route: 048
     Dates: start: 20120614
  17. SULFAMETHOXAZOLE AND TRIMETHOPRIM [Concomitant]
     Dosage: 400-80MG
     Route: 048
  18. CLONAZEPAM [Concomitant]
     Indication: ANXIETY
     Dosage: .5 MILLIGRAM
     Route: 048
     Dates: start: 20120322
  19. ELAVIL [Concomitant]
     Dosage: 100 MILLIGRAM
     Route: 048
     Dates: start: 20120215
  20. INSULIN [Concomitant]
     Dosage: U-100-0.3ML
     Route: 065
     Dates: start: 20110330
  21. NITROSTAT [Concomitant]
     Dosage: .4 TABLET
     Route: 060

REACTIONS (2)
  - ASTHMA [None]
  - BRONCHITIS [None]
